FAERS Safety Report 8807305 (Version 2)
Quarter: 2012Q4

REPORT INFORMATION
  Report Type: 
  Country: US (occurrence: US)
  Receive Date: 20120925
  Receipt Date: 20121205
  Transmission Date: 20130627
  Serious: Yes (Other)
  Sender: FDA-Public Use
  Company Number: US-UCBSA-067141

PATIENT
  Age: 52 Year
  Sex: Female
  Weight: 51.25 kg

DRUGS (5)
  1. CIMZIA [Suspect]
     Dosage: DISCONTINUED THE DRUG IN BETWEEN
     Dates: end: 201201
  2. CIMZIA [Suspect]
     Dates: start: 201208, end: 2012
  3. PREDNISONE [Concomitant]
     Indication: CROHN^S DISEASE
     Route: 048
     Dates: start: 201207
  4. IMODIUM [Concomitant]
  5. POTASSIUM CHLORIDE [Concomitant]

REACTIONS (2)
  - Rash generalised [Recovered/Resolved]
  - Arthralgia [Recovered/Resolved]
